FAERS Safety Report 4872752-8 (Version None)
Quarter: 2005Q4

REPORT INFORMATION
  Report Type: 
  Country: None (occurrence: None)
  Receive Date: 20051223
  Receipt Date: 20050316
  Transmission Date: 20060501
  Serious: Yes (Death)
  Sender: FDA-Public Use
  Company Number: US014936

PATIENT

DRUGS (1)
  1. ACTIQ [Suspect]
     Dates: end: 20030418

REACTIONS (1)
  - CARDIO-RESPIRATORY ARREST [None]
